FAERS Safety Report 21924937 (Version 1)
Quarter: 2023Q1

REPORT INFORMATION
  Report Type: Spontaneous
  Country: CA (occurrence: None)
  Receive Date: 20230130
  Receipt Date: 20230130
  Transmission Date: 20230417
  Serious: Yes (Other)
  Sender: FDA-Public Use
  Company Number: CA-PFIZER INC-202300034053

PATIENT
  Age: 17 Year
  Sex: Female
  Weight: 140 kg

DRUGS (1)
  1. METHOTREXATE [Suspect]
     Active Substance: METHOTREXATE
     Indication: Product used for unknown indication
     Dosage: 2.5X6
     Route: 065
     Dates: end: 20230104

REACTIONS (3)
  - Dermatitis atopic [Unknown]
  - Malaise [Unknown]
  - Insomnia [Unknown]
